FAERS Safety Report 15422229 (Version 2)
Quarter: 2018Q4

REPORT INFORMATION
  Report Type: Spontaneous
  Country: US (occurrence: US)
  Receive Date: 20180924
  Receipt Date: 20181211
  Transmission Date: 20190204
  Serious: Yes (Other)
  Sender: FDA-Public Use
  Company Number: US-009507513-1809USA009971

PATIENT
  Age: 60 Year
  Sex: Female

DRUGS (1)
  1. JANUVIA [Suspect]
     Active Substance: SITAGLIPTIN PHOSPHATE
     Indication: DIABETES MELLITUS
     Route: 048

REACTIONS (4)
  - Laboratory test abnormal [Recovering/Resolving]
  - Pain in extremity [Recovering/Resolving]
  - Lupus-like syndrome [Recovering/Resolving]
  - Red blood cell sedimentation rate increased [Recovering/Resolving]
